FAERS Safety Report 4677700-1 (Version None)
Quarter: 2005Q2

REPORT INFORMATION
  Report Type: 
  Country: None (occurrence: None)
  Receive Date: 20050527
  Receipt Date: 20050511
  Transmission Date: 20051028
  Serious: Yes (Death, Other)
  Sender: FDA-Public Use
  Company Number: ENTC2005-0127

PATIENT
  Age: 61 Year
  Sex: Male

DRUGS (2)
  1. STALEVO 100 [Suspect]
     Indication: PARKINSON'S DISEASE
     Dosage: 100 MG BID
     Route: 048
     Dates: start: 20041015
  2. SULPAM (BROMAZEPAM SULPIRIDE) [Concomitant]

REACTIONS (5)
  - ADVERSE DRUG REACTION [None]
  - AGITATION [None]
  - COMPLETED SUICIDE [None]
  - DELIRIUM [None]
  - HALLUCINATION [None]
